FAERS Safety Report 8432268-9 (Version None)
Quarter: 2012Q2

REPORT INFORMATION
  Report Type: 
  Country: None (occurrence: None)
  Receive Date: 20120613
  Receipt Date: 20120607
  Transmission Date: 20120825
  Serious: Yes (Other)
  Sender: FDA-Public Use
  Company Number: PHHY2012IE049861

PATIENT

DRUGS (2)
  1. BASILIXIMAB [Suspect]
     Indication: LUNG TRANSPLANT
     Dosage: UNK UKN, UNK
  2. METHYLPREDNISOLONE [Concomitant]
     Dosage: 125 MG, (125 MG EVERY 8 HR FOR 24 HR)

REACTIONS (1)
  - PNEUMOTHORAX [None]
